FAERS Safety Report 4801717-7 (Version None)
Quarter: 2005Q3

REPORT INFORMATION
  Report Type: 
  Country: None (occurrence: None)
  Receive Date: 20050929
  Receipt Date: 20050712
  Transmission Date: 20060218
  Serious: Yes (Hospitalization)
  Sender: FDA-Public Use
  Company Number: 05P-163-0305523-00

PATIENT
  Age: 77 Year
  Sex: Female

DRUGS (6)
  1. HUMIRA [Suspect]
     Indication: RHEUMATOID ARTHRITIS
     Dosage: 40 MG, 1 IN 2 WK, SUBCUTANEOUS
     Route: 058
     Dates: start: 20050401, end: 20050601
  2. PREDNISONE [Concomitant]
  3. ATORVASTATIN CALCIUM [Concomitant]
  4. ESTRADIOL [Concomitant]
  5. PAROXETINE HYDROCHLORIDE [Concomitant]
  6. NORTRIPTYLINE HCL [Concomitant]

REACTIONS (1)
  - DYSPNOEA [None]
